FAERS Safety Report 4835120-0 (Version None)
Quarter: 2005Q4

REPORT INFORMATION
  Report Type: 
  Country: None (occurrence: None)
  Receive Date: 20051114
  Receipt Date: 20050930
  Transmission Date: 20060501
  Serious: Yes (Death)
  Sender: FDA-Public Use
  Company Number: 2005AL004005

PATIENT
  Age: 23 Year
  Sex: 0

DRUGS (4)
  1. PHENOBARBITAL TABLETS USP, 30 MG (PUREPAC) [Suspect]
  2. PHENOBARBITAL ELIXIR USP (ALPHARMA) [Suspect]
  3. ETHER [Suspect]
  4. HEROIN [Suspect]

REACTIONS (3)
  - CARDIAC ARREST [None]
  - POLYSUBSTANCE ABUSE [None]
  - RESPIRATORY ARREST [None]
